FAERS Safety Report 6991997-4 (Version None)
Quarter: 2010Q3

REPORT INFORMATION
  Report Type: 
  Country: None (occurrence: None)
  Receive Date: 20100917
  Receipt Date: 20100908
  Transmission Date: 20110219
  Serious: Yes (Other)
  Sender: FDA-Public Use
  Company Number: US-PFIZER INC-2010114381

PATIENT
  Sex: Male
  Weight: 90.703 kg

DRUGS (4)
  1. CHANTIX [Suspect]
     Indication: SMOKING CESSATION THERAPY
     Dosage: 0.5 MG, 1X/DAY
     Route: 048
     Dates: start: 20100201, end: 20100101
  2. CHANTIX [Suspect]
     Dosage: UNK
     Dates: start: 20100101, end: 20100101
  3. LOTREL [Concomitant]
     Indication: HYPERTENSION
     Dosage: UNK
  4. IBUPROFEN [Concomitant]
     Dosage: UNK, AS NEEDED

REACTIONS (3)
  - IRRITABILITY [None]
  - PERSONALITY CHANGE [None]
  - SPINAL FUSION SURGERY [None]
